FAERS Safety Report 7752972-5 (Version None)
Quarter: 2011Q3

REPORT INFORMATION
  Report Type: 
  Country: None (occurrence: None)
  Receive Date: 20110913
  Receipt Date: 20110830
  Transmission Date: 20111222
  Serious: Yes (Other)
  Sender: FDA-Public Use
  Company Number: 2011MA012814

PATIENT
  Age: 9 Month
  Sex: Female

DRUGS (1)
  1. PROPRANOLOL HYDROCHLORIDE [Suspect]
     Indication: HAEMANGIOMA
     Dosage: 2 MG/KG, QD

REACTIONS (3)
  - BLOOD PRESSURE DECREASED [None]
  - POOR QUALITY SLEEP [None]
  - HYPOPHAGIA [None]
